FAERS Safety Report 5676272-2 (Version None)
Quarter: 2008Q1

REPORT INFORMATION
  Report Type: 
  Country: None (occurrence: None)
  Receive Date: 20080321
  Receipt Date: 20080318
  Transmission Date: 20080703
  Serious: Yes (Death, Life-Threatening, Hospitalization)
  Sender: FDA-Public Use
  Company Number: US-BOEHRINGER INGELHEIM GMBH, GERMANY-2008-BP-04075RO

PATIENT
  Age: 22 Month
  Sex: Male

DRUGS (7)
  1. DOLOPHINE TABLETS (METHADONE HCL TABLETS USP), 5 MG [Suspect]
  2. ELAVIL [Suspect]
  3. NEURONTIN [Suspect]
  4. VALIUM [Suspect]
  5. NARCAN [Concomitant]
     Indication: OVERDOSE
  6. EPINEPHRINE [Concomitant]
     Indication: BLOOD PRESSURE
     Route: 042
  7. EPINEPHRINE [Concomitant]
     Indication: HEART RATE

REACTIONS (10)
  - AUTONOMIC FAILURE SYNDROME [None]
  - BODY TEMPERATURE FLUCTUATION [None]
  - BRAIN DEATH [None]
  - DIABETES INSIPIDUS [None]
  - DRUG SCREEN POSITIVE [None]
  - DRUG TOXICITY [None]
  - HYPERHIDROSIS [None]
  - LOSS OF CONSCIOUSNESS [None]
  - NOSOCOMIAL INFECTION [None]
  - RESPIRATORY FAILURE [None]
